FAERS Safety Report 4546670-9 (Version None)
Quarter: 2005Q1

REPORT INFORMATION
  Report Type: 
  Country: None (occurrence: None)
  Receive Date: 20050105
  Receipt Date: 20041221
  Transmission Date: 20050727
  Serious: Yes (Death, Hospitalization)
  Sender: FDA-Public Use
  Company Number: 2004AL000512

PATIENT
  Age: 32 Year
  Sex: Male

DRUGS (2)
  1. CHILDREN'S APAP ELIXIR (ACETAMINOPHEN) (ALPHARMA) [Suspect]
     Dosage: PO
     Route: 048
  2. INFANTS' APAP DROPS (ACETAMINOPHEN) (ALPHARMA) [Suspect]
     Dosage: PO
     Route: 048

REACTIONS (17)
  - ALANINE AMINOTRANSFERASE INCREASED [None]
  - ASPARTATE AMINOTRANSFERASE INCREASED [None]
  - BLOOD BILIRUBIN INCREASED [None]
  - BLOOD CREATINE INCREASED [None]
  - BLOOD UREA INCREASED [None]
  - BRAIN DEATH [None]
  - BRAIN OEDEMA [None]
  - COAGULOPATHY [None]
  - COMPLETED SUICIDE [None]
  - CONVULSION [None]
  - HEPATIC FAILURE [None]
  - HYPOGLYCAEMIA [None]
  - HYPOTENSION [None]
  - INTERNATIONAL NORMALISED RATIO INCREASED [None]
  - METABOLIC ACIDOSIS [None]
  - OVERDOSE [None]
  - TACHYPNOEA [None]
